FAERS Safety Report 8354070-9 (Version None)
Quarter: 2012Q2

REPORT INFORMATION
  Report Type: 
  Country: None (occurrence: None)
  Receive Date: 20120511
  Receipt Date: 20120504
  Transmission Date: 20120825
  Serious: Yes (Other)
  Sender: FDA-Public Use
  Company Number: US-ASTRAZENECA-2009SE24045

PATIENT
  Age: 59 Year
  Sex: Female
  Weight: 79.8 kg

DRUGS (4)
  1. SEROQUEL XR [Suspect]
     Indication: BIPOLAR DISORDER
     Route: 048
     Dates: end: 20090801
  2. SEROQUEL XR [Suspect]
     Route: 048
  3. EFFEXOR [Concomitant]
     Indication: BIPOLAR DISORDER
  4. EFFEXOR [Concomitant]
     Indication: OBSESSIVE-COMPULSIVE DISORDER

REACTIONS (16)
  - CONCUSSION [None]
  - WRIST FRACTURE [None]
  - FATIGUE [None]
  - FALL [None]
  - INSOMNIA [None]
  - AMNESIA [None]
  - SKIN INJURY [None]
  - UPPER LIMB FRACTURE [None]
  - MENTAL IMPAIRMENT [None]
  - WEIGHT INCREASED [None]
  - MEMORY IMPAIRMENT [None]
  - PERSONALITY CHANGE [None]
  - INTENTIONAL DRUG MISUSE [None]
  - EXPIRED DRUG ADMINISTERED [None]
  - PAIN [None]
  - CONFUSIONAL STATE [None]
